FAERS Safety Report 11007955 (Version 3)
Quarter: 2015Q2

REPORT INFORMATION
  Report Type: Report from Study
  Country: CA (occurrence: CA)
  Receive Date: 20150410
  Receipt Date: 20150421
  Transmission Date: 20150821
  Serious: Yes (Life-Threatening, Hospitalization)
  Sender: FDA-Public Use
  Company Number: CA-ROCHE-1507814

PATIENT
  Age: 73 Year
  Sex: Female

DRUGS (9)
  1. ADALAT [Concomitant]
     Active Substance: NIFEDIPINE
  2. PREDNISONE. [Concomitant]
     Active Substance: PREDNISONE
  3. PARIET [Concomitant]
     Active Substance: RABEPRAZOLE SODIUM
  4. SOFLAX (CANADA) [Concomitant]
  5. OMEPRAZOLE. [Concomitant]
     Active Substance: OMEPRAZOLE
  6. DIAMICRON [Concomitant]
     Active Substance: GLICLAZIDE
  7. VOLTAREN [Concomitant]
     Active Substance: DICLOFENAC SODIUM
  8. ACTEMRA [Suspect]
     Active Substance: TOCILIZUMAB
     Indication: RHEUMATOID ARTHRITIS
     Route: 058
     Dates: start: 20141015
  9. HUMIRA [Concomitant]
     Active Substance: ADALIMUMAB

REACTIONS (3)
  - Cerebrovascular accident [Unknown]
  - Motor dysfunction [Not Recovered/Not Resolved]
  - Wound [Not Recovered/Not Resolved]

NARRATIVE: CASE EVENT DATE: 20150331
